FAERS Safety Report 8099332-8 (Version None)
Quarter: 2012Q1

REPORT INFORMATION
  Report Type: 
  Country: None (occurrence: None)
  Receive Date: 20120131
  Receipt Date: 20120123
  Transmission Date: 20120608
  Serious: Yes (Hospitalization)
  Sender: FDA-Public Use
  Company Number: CA-PFIZER INC-2009303458

PATIENT
  Age: 80 Year
  Sex: Male
  Weight: 68.9 kg

DRUGS (26)
  1. FLOVENT [Concomitant]
     Indication: EMPHYSEMA
     Dosage: 500 UG/DOSE, 2X/DAY
     Route: 048
     Dates: start: 20051201
  2. FLUTICASONE [Concomitant]
     Indication: EMPHYSEMA
     Dosage: 2 INHALATIONS PER DAY
     Route: 055
     Dates: start: 20090309
  3. MORPHINE SULFATE [Concomitant]
     Indication: BONE PAIN
     Dosage: 70 MG, 1X/DAY
     Route: 048
     Dates: start: 20090619
  4. VITAMIN D [Concomitant]
     Indication: METASTASES TO BONE
     Dosage: 400 IU, 3X/DAY
     Route: 048
     Dates: start: 20090627
  5. SIMVASTATIN 'NOVO' [Concomitant]
     Indication: HYPERCHOLESTEROLAEMIA
     Dosage: 20 MG, 1X/DAY
     Route: 048
     Dates: start: 20070130
  6. CELEBREX [Concomitant]
     Indication: BONE PAIN
     Dosage: 100 MG, 2X/DAY
     Route: 048
     Dates: start: 20090515
  7. DOCUSATE SODIUM [Concomitant]
     Indication: CONSTIPATION
     Dosage: 100 MG, 1X/DAY
     Route: 048
     Dates: start: 20081106
  8. ZOMETA [Concomitant]
     Indication: METASTASES TO BONE
     Dosage: 4 MG, EVERY 4 WEEKS
     Route: 042
     Dates: start: 20090611, end: 20091029
  9. PREDNISONE TAB [Suspect]
     Indication: PROSTATE CANCER
     Dosage: 5 MG, 2X/DAY
     Route: 048
     Dates: start: 20091015, end: 20091125
  10. ACETAMINOPHEN [Concomitant]
     Indication: BONE PAIN
     Dosage: 2 DF, 1X/DAY
     Route: 048
     Dates: start: 20090324
  11. GRAVOL TAB [Concomitant]
     Dosage: 25 MG, 3X/DAY
     Route: 048
     Dates: start: 20091106
  12. PREVACID LA [Concomitant]
     Indication: DYSPEPSIA
     Dosage: 30 MG, 1X/DAY
     Route: 048
     Dates: start: 20090301, end: 20091125
  13. NOVO-ACEBUTOLOL [Concomitant]
     Indication: HYPERTENSION
     Dosage: 100 MG, 2X/DAY
     Route: 048
     Dates: start: 20011018, end: 20091126
  14. ACETYLSALICYLIC ACID ENTERIC COATED 'PMS' [Concomitant]
     Indication: PROPHYLAXIS
     Dosage: 325 MG, 1X/DAY
     Route: 048
     Dates: start: 20050130
  15. SYNTHROID [Concomitant]
     Indication: HYPOTHYROIDISM
     Dosage: 0.5 MG, 1X/DAY
     Route: 048
     Dates: start: 20090927
  16. PHOSPHATE-SANDOZ [Concomitant]
     Indication: BLOOD PHOSPHORUS DECREASED
     Dosage: 1936 MG, 2X/DAY
     Route: 048
     Dates: start: 20090601
  17. GRAVOL TAB [Concomitant]
     Indication: NAUSEA
     Dosage: 50 MG, EVERY 6 HOURS
     Route: 048
     Dates: start: 20091028, end: 20091029
  18. ISMN - SLOW RELEASE 'APO' [Concomitant]
     Indication: PROPHYLAXIS
     Dosage: 90 MG, 1X/DAY
     Route: 048
     Dates: start: 20080324
  19. NITRO SPRAY 'GEN' [Concomitant]
     Dosage: UNK, AS NEEDED
  20. APO-FUROSEMIDE [Concomitant]
     Indication: OEDEMA PERIPHERAL
     Dosage: 20 MG, 1X/DAY
     Route: 048
     Dates: start: 20090403
  21. SUNITINIB MALATE [Suspect]
     Indication: PROSTATE CANCER
     Dosage: 37.5 MG, 1X/DAY
     Route: 048
     Dates: start: 20091015, end: 20091125
  22. SALBUTAMOL INHALANT ^RATIOPHARM^ [Concomitant]
     Indication: EMPHYSEMA
     Dosage: 100 UG/DOSE, EVERY 4 HRS
     Route: 048
     Dates: start: 20080224
  23. SENNA-MINT WAF [Concomitant]
     Indication: CONSTIPATION
     Dosage: 8.6 MG, 1X/DAY
     Route: 048
     Dates: start: 20081106
  24. SIMVASTATIN [Concomitant]
     Indication: BONE PAIN
     Dosage: 5 MG, CYCLIC
     Route: 048
     Dates: start: 20090515
  25. MAXERAN [Concomitant]
     Indication: NAUSEA
     Dosage: 10 MG, EVERY 8 HOURS
     Route: 048
     Dates: start: 20091029, end: 20091105
  26. CALCIUM [Concomitant]
     Indication: METASTASES TO BONE
     Dosage: 500 MG, 3X/DAY
     Route: 048
     Dates: start: 20090627

REACTIONS (1)
  - DIVERTICULAR PERFORATION [None]
